FAERS Safety Report 11230657 (Version 1)
Quarter: 2015Q3

REPORT INFORMATION
  Report Type: Spontaneous
  Country: US (occurrence: US)
  Receive Date: 20150701
  Receipt Date: 20150701
  Transmission Date: 20151125
  Serious: No
  Sender: FDA-Public Use
  Company Number: US-PFIZER INC-2015216163

PATIENT
  Age: 72 Year
  Sex: Female
  Weight: 83 kg

DRUGS (1)
  1. XELJANZ [Suspect]
     Active Substance: TOFACITINIB CITRATE
     Dosage: UNK
     Dates: start: 201506

REACTIONS (7)
  - Weight increased [Unknown]
  - Herpes zoster [Unknown]
  - Fatigue [Unknown]
  - Back pain [Unknown]
  - Malaise [Unknown]
  - Back disorder [Unknown]
  - Asthenia [Unknown]

NARRATIVE: CASE EVENT DATE: 201506
